FAERS Safety Report 13897129 (Version 2)
Quarter: 2017Q4

REPORT INFORMATION
  Report Type: Spontaneous
  Country: US (occurrence: US)
  Receive Date: 20170823
  Receipt Date: 20171016
  Transmission Date: 20180320
  Serious: Yes (Disabling, Other)
  Sender: FDA-Public Use
  Company Number: US-REGENERON PHARMACEUTICALS, INC.-2017-20378

PATIENT

DRUGS (1)
  1. EYLEA [Suspect]
     Active Substance: AFLIBERCEPT
     Indication: NEOVASCULAR AGE-RELATED MACULAR DEGENERATION
     Dosage: 2 MG, LEFT EYE (OS), ONCE, FIRST INJECTION
     Route: 031
     Dates: start: 20120613, end: 20120710

REACTIONS (4)
  - Eye pain [Recovered/Resolved]
  - Blindness transient [Recovered/Resolved]
  - Non-infectious endophthalmitis [Unknown]
  - Vitritis [Recovered/Resolved]

NARRATIVE: CASE EVENT DATE: 20120616
